FAERS Safety Report 5468182-0 (Version None)
Quarter: 2007Q3

REPORT INFORMATION
  Report Type: 
  Country: None (occurrence: None)
  Receive Date: 20070921
  Receipt Date: 20070910
  Transmission Date: 20080115
  Serious: Yes (Other)
  Sender: FDA-Public Use
  Company Number: 2007JP004309

PATIENT
  Sex: Male

DRUGS (1)
  1. PROGRAF [Suspect]
     Indication: DERMATITIS ATOPIC
     Dosage: TOPICAL
     Route: 061

REACTIONS (3)
  - HERPES VIRUS INFECTION [None]
  - INTERFERON GAMMA DECREASED [None]
  - KAPOSI'S VARICELLIFORM ERUPTION [None]
